FAERS Safety Report 13773206 (Version 1)
Quarter: 2017Q3

REPORT INFORMATION
  Report Type: Spontaneous
  Country: AT (occurrence: AT)
  Receive Date: 20170720
  Receipt Date: 20170720
  Transmission Date: 20171127
  Serious: Yes (Hospitalization, Other)
  Sender: FDA-Public Use
  Company Number: AT-TEVA-787543ISR

PATIENT
  Age: 61 Year
  Sex: Male

DRUGS (55)
  1. SEROQUEL [Concomitant]
     Active Substance: QUETIAPINE FUMARATE
     Dates: start: 20160506, end: 20160509
  2. OLEOVIT [Concomitant]
     Dates: start: 20160509
  3. TRITTICO [Concomitant]
     Active Substance: TRAZODONE HYDROCHLORIDE
     Dates: start: 20160505, end: 20160525
  4. INDERAL [Concomitant]
     Active Substance: PROPRANOLOL HYDROCHLORIDE
     Dates: start: 20160512, end: 20160512
  5. SEROQUEL [Concomitant]
     Active Substance: QUETIAPINE FUMARATE
     Dates: start: 20160517, end: 20160518
  6. SEROQUEL [Concomitant]
     Active Substance: QUETIAPINE FUMARATE
     Dates: start: 20160603, end: 20160608
  7. SEROQUEL [Concomitant]
     Active Substance: QUETIAPINE FUMARATE
     Dates: start: 20160609, end: 20160609
  8. SEROQUEL [Concomitant]
     Active Substance: QUETIAPINE FUMARATE
     Dates: start: 20160629
  9. NEUROMULTIVIT [Concomitant]
     Active Substance: CYANOCOBALAMIN\PYRIDOXINE\THIAMINE
     Dates: start: 20160505, end: 20160518
  10. MOVICOL [Concomitant]
     Active Substance: POLYETHYLENE GLYCOL 3350\POTASSIUM CHLORIDE\SODIUM BICARBONATE\SODIUM CHLORIDE
     Dates: start: 20160506, end: 20160513
  11. RISPERDAL [Concomitant]
     Active Substance: RISPERIDONE
     Dates: start: 20160627, end: 20160627
  12. RISPERDAL [Concomitant]
     Active Substance: RISPERIDONE
     Dates: start: 20160630
  13. LYRICA [Concomitant]
     Active Substance: PREGABALIN
     Dates: start: 20160525, end: 20160527
  14. TEMESTA [Concomitant]
     Active Substance: LORAZEPAM
     Dates: start: 20160504, end: 20160504
  15. TEMESTA [Concomitant]
     Active Substance: LORAZEPAM
     Dosage: 1-2MG
     Dates: start: 20160505, end: 20160515
  16. TRITTICO [Concomitant]
     Active Substance: TRAZODONE HYDROCHLORIDE
     Dates: start: 20160526, end: 20160526
  17. ATARAX [Concomitant]
     Active Substance: HYDROXYZINE HYDROCHLORIDE
     Dates: start: 20160511, end: 20160512
  18. TRILEPTAL [Concomitant]
     Active Substance: OXCARBAZEPINE
     Dates: start: 20160519, end: 20160519
  19. TRILEPTAL [Concomitant]
     Active Substance: OXCARBAZEPINE
     Dates: start: 20160520, end: 20160523
  20. LYRICA [Concomitant]
     Active Substance: PREGABALIN
     Dates: start: 20160529, end: 20160601
  21. LAEVOLAC [Concomitant]
     Active Substance: LACTULOSE
     Dates: start: 20160506, end: 20160513
  22. ANTIBIOPHILUS [Concomitant]
     Dosage: 3 DOSAGE FORMS DAILY;
     Dates: start: 20160611, end: 20160621
  23. SERTRALINE [Suspect]
     Active Substance: SERTRALINE HYDROCHLORIDE
     Dates: start: 20160530, end: 20160607
  24. SERTRALINE [Suspect]
     Active Substance: SERTRALINE HYDROCHLORIDE
     Dates: start: 20160609, end: 20160627
  25. INDERAL [Concomitant]
     Active Substance: PROPRANOLOL HYDROCHLORIDE
     Dates: start: 20160508, end: 20160508
  26. LYRICA [Concomitant]
     Active Substance: PREGABALIN
     Dates: start: 20160528, end: 20160528
  27. MIRTABENE [Concomitant]
     Active Substance: MIRTAZAPINE
     Dates: start: 20160513, end: 20160518
  28. SEROQUEL [Concomitant]
     Active Substance: QUETIAPINE FUMARATE
     Dates: start: 20160510, end: 20160516
  29. RISPERDAL [Concomitant]
     Active Substance: RISPERIDONE
     Dates: start: 20160629, end: 20160629
  30. LYRICA [Concomitant]
     Active Substance: PREGABALIN
     Dates: start: 20160607, end: 20160609
  31. SERTRALINE [Suspect]
     Active Substance: SERTRALINE HYDROCHLORIDE
     Dates: start: 20160526, end: 20160529
  32. TRITTICO [Concomitant]
     Active Substance: TRAZODONE HYDROCHLORIDE
     Dosage: TILL 450MG
     Dates: end: 20160504
  33. SEROQUEL [Concomitant]
     Active Substance: QUETIAPINE FUMARATE
     Dates: start: 20160519, end: 20160602
  34. TRILEPTAL [Concomitant]
     Active Substance: OXCARBAZEPINE
     Dates: start: 20160518, end: 20160518
  35. TRILEPTAL [Concomitant]
     Active Substance: OXCARBAZEPINE
     Dates: start: 20160525, end: 20160525
  36. HOVA [Concomitant]
     Active Substance: HERBALS\HOPS\VALERIAN
     Dates: start: 20160520, end: 20160520
  37. EFECTIN [Concomitant]
     Active Substance: VENLAFAXINE HYDROCHLORIDE
     Dosage: 75-300MG
     Dates: end: 20160503
  38. SERTRALINE [Suspect]
     Active Substance: SERTRALINE HYDROCHLORIDE
     Dates: start: 20160608, end: 20160608
  39. PANTOLOC [Suspect]
     Active Substance: PANTOPRAZOLE SODIUM
     Dates: start: 20160511, end: 20160703
  40. RISPERDAL [Concomitant]
     Active Substance: RISPERIDONE
     Dates: start: 20160609, end: 20160609
  41. RISPERDAL [Concomitant]
     Active Substance: RISPERIDONE
     Dates: start: 20160610, end: 20160619
  42. TRILEPTAL [Concomitant]
     Active Substance: OXCARBAZEPINE
     Dates: start: 20160524, end: 20160524
  43. LYRICA [Concomitant]
     Active Substance: PREGABALIN
     Dates: start: 20160602, end: 20160606
  44. LYRICA [Concomitant]
     Active Substance: PREGABALIN
     Dates: start: 20160610
  45. METOHEXAL [Concomitant]
     Active Substance: METOPROLOL SUCCINATE
  46. BUDOSAN [Concomitant]
     Active Substance: BUDESONIDE
     Dates: start: 20160629
  47. SERTRALINE [Suspect]
     Active Substance: SERTRALINE HYDROCHLORIDE
     Dates: start: 20160524, end: 20160525
  48. PANTOLOC [Suspect]
     Active Substance: PANTOPRAZOLE SODIUM
     Dates: start: 20160505, end: 20160510
  49. MIRTABENE [Concomitant]
     Active Substance: MIRTAZAPINE
     Dates: start: 201604, end: 20160512
  50. INDERAL [Concomitant]
     Active Substance: PROPRANOLOL HYDROCHLORIDE
     Dates: start: 20160513, end: 20160513
  51. SEROQUEL [Concomitant]
     Active Substance: QUETIAPINE FUMARATE
     Dates: start: 20160610, end: 20160627
  52. MEPRIL [Concomitant]
  53. CIPRALEX [Concomitant]
     Active Substance: ESCITALOPRAM OXALATE
     Dates: start: 20160701
  54. CIPRALEX [Concomitant]
     Active Substance: ESCITALOPRAM OXALATE
     Dates: start: 20160629, end: 20160630
  55. IMODIUM [Concomitant]
     Active Substance: LOPERAMIDE HYDROCHLORIDE
     Dates: start: 20160615, end: 20160616

REACTIONS (1)
  - Colitis microscopic [Recovered/Resolved]

NARRATIVE: CASE EVENT DATE: 20160610
